FAERS Safety Report 22048503 (Version 3)
Quarter: 2023Q1

REPORT INFORMATION
  Report Type: Report from Study
  Country: NO (occurrence: NO)
  Receive Date: 20230301
  Receipt Date: 20230308
  Transmission Date: 20230418
  Serious: Yes (Hospitalization)
  Sender: FDA-Public Use
  Company Number: NO-GLAXOSMITHKLINE-NO2023029974

PATIENT

DRUGS (11)
  1. NIRAPARIB [Suspect]
     Active Substance: NIRAPARIB
     Indication: Non-small cell lung cancer
     Dosage: DOSE AT CYCLE 1 - DAY 1
     Dates: start: 20221109
  2. NIRAPARIB [Suspect]
     Active Substance: NIRAPARIB
     Dosage: DOSE AT CYCLE 1 - DAY 15
     Dates: start: 20221123
  3. NIRAPARIB [Suspect]
     Active Substance: NIRAPARIB
     Dosage: DOSE AT CYCLE 3 - DAY 1
     Dates: start: 20221214
  4. NIRAPARIB [Suspect]
     Active Substance: NIRAPARIB
     Dosage: DOSE AT CYCLE 5 - DAY 1
     Dates: start: 20230201
  5. NIRAPARIB [Suspect]
     Active Substance: NIRAPARIB
     Dosage: DOSE AT CYCLE 6 - DAY 1
     Dates: start: 20230223
  6. PEMBROLIZUMAB [Suspect]
     Active Substance: PEMBROLIZUMAB
     Indication: Non-small cell lung cancer
     Dosage: DOSE AT CYCLE 1 - DAY 1
     Route: 042
     Dates: start: 20221109, end: 20221109
  7. PEMBROLIZUMAB [Suspect]
     Active Substance: PEMBROLIZUMAB
     Dosage: DOSE AT CYCLE 2 - DAY 1
     Route: 042
     Dates: start: 20221130, end: 20221130
  8. PEMBROLIZUMAB [Suspect]
     Active Substance: PEMBROLIZUMAB
     Dosage: DOSE AT CYCLE 3 - DAY 1
     Route: 042
     Dates: start: 20221221, end: 20221221
  9. PEMBROLIZUMAB [Suspect]
     Active Substance: PEMBROLIZUMAB
     Dosage: DOSE AT CYCLE 4 - DAY 1
     Route: 042
     Dates: start: 20230111, end: 20230111
  10. PEMBROLIZUMAB [Suspect]
     Active Substance: PEMBROLIZUMAB
     Dosage: DOSE AT CYCLE 5 - DAY 1
     Route: 042
     Dates: start: 20230201, end: 20230201
  11. PEMBROLIZUMAB [Suspect]
     Active Substance: PEMBROLIZUMAB
     Dosage: DOSE AT CYCLE 6 - DAY 1
     Route: 042
     Dates: start: 20230223, end: 20230223

REACTIONS (1)
  - Dehydration [Recovered/Resolved]

NARRATIVE: CASE EVENT DATE: 20230219
